FAERS Safety Report 19460928 (Version 1)
Quarter: 2021Q2

REPORT INFORMATION
  Report Type: Spontaneous
  Country: ES (occurrence: ES)
  Receive Date: 20210625
  Receipt Date: 20210625
  Transmission Date: 20210717
  Serious: Yes (Hospitalization)
  Sender: FDA-Public Use
  Company Number: ES-TEVA-2021-ES-1925311

PATIENT
  Age: 94 Year
  Sex: Female
  Weight: 45 kg

DRUGS (5)
  1. LOSARTAN (7157A) [Concomitant]
     Active Substance: LOSARTAN
  2. LORMETAZEPAM (88A) [Concomitant]
     Active Substance: LORMETAZEPAM
  3. BISOPROLOL (2328A) [Suspect]
     Active Substance: BISOPROLOL
     Dates: start: 20210511, end: 20210511
  4. DIGOXINA (770A) [Suspect]
     Active Substance: DIGOXIN
     Dosage: 2.5MILLIGRAM
     Dates: start: 20210509, end: 20210515
  5. FLECAINIDA (2363A) [Concomitant]
     Active Substance: FLECAINIDE

REACTIONS (4)
  - Chest wall haematoma [Recovered/Resolved]
  - Renal failure [Recovered/Resolved]
  - Lung infiltration [Recovered/Resolved]
  - Drug reaction with eosinophilia and systemic symptoms [Recovered/Resolved]

NARRATIVE: CASE EVENT DATE: 20210513
